FAERS Safety Report 17171695 (Version 1)
Quarter: 2019Q4

REPORT INFORMATION
  Report Type: Spontaneous
  Country: US (occurrence: US)
  Receive Date: 20191218
  Receipt Date: 20191218
  Transmission Date: 20200122
  Serious: Yes (Other)
  Sender: FDA-Public Use
  Company Number: US-TEVA-2019-US-1154245

PATIENT

DRUGS (2)
  1. CLONAZEPAM ACTAVIS [Suspect]
     Active Substance: CLONAZEPAM
     Indication: ANXIETY DISORDER
     Dosage: DISP. QTY: 90
     Dates: start: 2019
  2. CLONAZEPAM ACTAVIS [Suspect]
     Active Substance: CLONAZEPAM
     Indication: POST-TRAUMATIC STRESS DISORDER

REACTIONS (20)
  - Balance disorder [Unknown]
  - Muscular weakness [Unknown]
  - Contusion [Unknown]
  - Dizziness [Unknown]
  - Feeling abnormal [Not Recovered/Not Resolved]
  - Staphylococcal infection [Unknown]
  - Syncope [Unknown]
  - Vision blurred [Unknown]
  - Fall [Unknown]
  - Toxicity to various agents [Unknown]
  - Agitation [Unknown]
  - Diplopia [Unknown]
  - Product substitution issue [Unknown]
  - Back injury [Unknown]
  - Limb injury [Unknown]
  - Hypoaesthesia [Unknown]
  - Joint injury [Unknown]
  - Insomnia [Unknown]
  - Head injury [Unknown]
  - Product use in unapproved indication [Unknown]

NARRATIVE: CASE EVENT DATE: 2019
